FAERS Safety Report 6284531-8 (Version None)
Quarter: 2009Q3

REPORT INFORMATION
  Report Type: 
  Country: None (occurrence: None)
  Receive Date: 20090727
  Receipt Date: 20090721
  Transmission Date: 20100115
  Serious: Yes (Life-Threatening)
  Sender: FDA-Public Use
  Company Number: US-EISAI INC.-E3810-02809-SPO-US

PATIENT
  Age: 47 Year
  Sex: Male
  Weight: 90 kg

DRUGS (2)
  1. ACIPHEX [Suspect]
     Route: 048
     Dates: start: 20010101
  2. ASPIRIN [Suspect]
     Dosage: UNKNOWN
     Route: 065

REACTIONS (3)
  - DRUG HYPERSENSITIVITY [None]
  - FOOD ALLERGY [None]
  - HYPERSENSITIVITY [None]
